FAERS Safety Report 25486540 (Version 1)
Quarter: 2025Q2

REPORT INFORMATION
  Report Type: Spontaneous
  Country: GB (occurrence: GB)
  Receive Date: 20250627
  Receipt Date: 20250627
  Transmission Date: 20250716
  Serious: Yes (Other)
  Sender: CELLTRION
  Company Number: GB-CELLTRION INC.-2024GB027961

PATIENT

DRUGS (1)
  1. YUFLYMA [Suspect]
     Active Substance: ADALIMUMAB-AATY
     Indication: Axial spondyloarthritis
     Route: 058
     Dates: start: 202410

REACTIONS (5)
  - Crohn^s disease [Unknown]
  - Condition aggravated [Unknown]
  - Product dispensing error [Unknown]
  - Product dose omission issue [Unknown]
  - Product prescribing issue [Unknown]
